FAERS Safety Report 9887966 (Version 2)
Quarter: 2014Q1

REPORT INFORMATION
  Report Type: Report from Study
  Country: US (occurrence: US)
  Receive Date: 20140211
  Receipt Date: 20140211
  Transmission Date: 20141002
  Serious: Yes (Death, Other)
  Sender: FDA-Public Use
  Company Number: US-BAYER-2013-118645

PATIENT
  Age: 75 Year
  Sex: Male
  Weight: 90.7 kg

DRUGS (2)
  1. NEXAVAR [Suspect]
     Indication: HEPATIC CANCER
     Dosage: 200 MG, BID
     Route: 048
     Dates: start: 20130924, end: 20130927
  2. LISINOPRIL [Concomitant]
     Dosage: 20 MG, QD

REACTIONS (8)
  - Hepatic cancer [Fatal]
  - Abdominal pain upper [Not Recovered/Not Resolved]
  - Rash generalised [Not Recovered/Not Resolved]
  - Headache [Not Recovered/Not Resolved]
  - Abdominal distension [Not Recovered/Not Resolved]
  - Feeling abnormal [None]
  - Malaise [None]
  - Aphagia [None]
